FAERS Safety Report 9895115 (Version 1)
Quarter: 2014Q1

REPORT INFORMATION
  Report Type: Spontaneous
  Country: US (occurrence: US)
  Receive Date: 20140213
  Receipt Date: 20140213
  Transmission Date: 20141002
  Serious: No
  Sender: FDA-Public Use
  Company Number: US-BRISTOL-MYERS SQUIBB COMPANY-18901611

PATIENT
  Age: 36 Year
  Sex: Female

DRUGS (2)
  1. ORENCIA [Suspect]
     Indication: RHEUMATOID ARTHRITIS
     Route: 042
     Dates: start: 20130510
  2. HEPARIN [Concomitant]
     Indication: FLUSHING

REACTIONS (3)
  - Headache [Unknown]
  - Migraine [Unknown]
  - Pruritus generalised [Recovering/Resolving]
